FAERS Safety Report 7717455-7 (Version None)
Quarter: 2011Q3

REPORT INFORMATION
  Report Type: 
  Country: None (occurrence: None)
  Receive Date: 20110824
  Receipt Date: 20110811
  Transmission Date: 20111222
  Serious: Yes (Hospitalization)
  Sender: FDA-Public Use
  Company Number: 1000023026

PATIENT
  Age: 58 Year
  Sex: Female
  Weight: 45 kg

DRUGS (1)
  1. CITALOPRAM HYDROBROMIDE [Suspect]
     Indication: DEPRESSION
     Dosage: 40 MG (40 MG, 1 IN 1 D),ORAL, ORAL
     Route: 048
     Dates: start: 19960827

REACTIONS (7)
  - SOCIAL AVOIDANT BEHAVIOUR [None]
  - PSYCHOTIC DISORDER [None]
  - CONFUSIONAL STATE [None]
  - DYSPHEMIA [None]
  - ANXIETY [None]
  - FEELING ABNORMAL [None]
  - DEHYDRATION [None]
